FAERS Safety Report 22108293 (Version 1)
Quarter: 2023Q1

REPORT INFORMATION
  Report Type: Spontaneous
  Country: US (occurrence: US)
  Receive Date: 20230317
  Receipt Date: 20230317
  Transmission Date: 20230418
  Serious: No
  Sender: FDA-Public Use
  Company Number: US-002147023-NVSC2023US059241

PATIENT
  Sex: Female

DRUGS (1)
  1. VOTRIENT [Suspect]
     Active Substance: PAZOPANIB HYDROCHLORIDE
     Indication: Paternal exposure during pregnancy
     Dosage: EXPOSURE VIA PARTNER (800 MG, QD, ORAL)
     Route: 050
     Dates: start: 20230123

REACTIONS (1)
  - Exposure via partner [Unknown]
